FAERS Safety Report 11362626 (Version 4)
Quarter: 2016Q4

REPORT INFORMATION
  Report Type: Report from Study
  Country: JP (occurrence: JP)
  Receive Date: 20150810
  Receipt Date: 20161109
  Transmission Date: 20170206
  Serious: Yes (Hospitalization, Other)
  Sender: FDA-Public Use
  Company Number: JP-OTSUKA-2015_006923

PATIENT
  Age: 58 Year
  Sex: Male

DRUGS (40)
  1. TOLVAPTAN [Suspect]
     Active Substance: TOLVAPTAN
     Indication: CONGENITAL CYSTIC KIDNEY DISEASE
     Dosage: 60 MG, IN THE MORNING
     Route: 048
     Dates: start: 20140620, end: 20160604
  2. NORVASC [Concomitant]
     Active Substance: AMLODIPINE BESYLATE
     Indication: HYPERTENSION
     Dosage: 5 MG, QD
     Route: 048
     Dates: start: 20140516
  3. MEIACT [Concomitant]
     Active Substance: CEFDITOREN PIVOXIL
     Indication: INFECTED CYST
     Dosage: 100 MG, TID
     Route: 048
     Dates: start: 20150516
  4. TRANSAMIN [Concomitant]
     Active Substance: TRANEXAMIC ACID
     Indication: CONGENITAL CYSTIC KIDNEY DISEASE
     Dosage: 1 G, QD
     Route: 042
  5. NAUZELIN [Concomitant]
     Active Substance: DOMPERIDONE
     Indication: PRODUCT USED FOR UNKNOWN INDICATION
     Dosage: 30 MG, QD
     Route: 048
     Dates: start: 20160602, end: 20160604
  6. SOLULACT [Concomitant]
     Dosage: 500 MG, QD
     Route: 042
     Dates: start: 20160605, end: 20160607
  7. SOLDEM 1 [Concomitant]
     Active Substance: DEXTROSE\SODIUM CHLORIDE\SODIUM LACTATE
     Indication: PRODUCT USED FOR UNKNOWN INDICATION
     Dosage: 500 ML, QD
     Route: 042
     Dates: start: 20160604, end: 20160604
  8. ASTOMIN [Concomitant]
     Active Substance: DIMEMORFAN
     Dosage: 40 MG, QD
     Route: 048
     Dates: start: 20160610, end: 20160610
  9. TOLVAPTAN [Suspect]
     Active Substance: TOLVAPTAN
     Dosage: 15 MG, IN THE EVENING
     Route: 048
     Dates: start: 20150213
  10. DIOVAN [Suspect]
     Active Substance: VALSARTAN
     Indication: HYPERTENSION
     Dosage: 40 MG, QD
     Route: 048
     Dates: start: 20140516
  11. MIYA-BM [Concomitant]
     Active Substance: CLOSTRIDIUM BUTYRICUM SPORES STRAIN M-55
     Indication: PROPHYLAXIS
     Dosage: 40 MG, TID
     Route: 048
  12. ADONA [Concomitant]
     Active Substance: CARBAZOCHROME SODIUM SULFONATE
     Indication: CONGENITAL CYSTIC KIDNEY DISEASE
     Dosage: 100 MG, QD
     Route: 042
  13. ARGAMATE [Concomitant]
     Active Substance: CALCIUM POLYSTYRENE SULFONATE
     Indication: PRODUCT USED FOR UNKNOWN INDICATION
     Dosage: 50 G, QD
     Route: 048
     Dates: start: 20150805
  14. ALFAROL [Concomitant]
     Active Substance: ALFACALCIDOL
     Indication: HYPERPARATHYROIDISM SECONDARY
     Dosage: 0.25 ?G, QD
     Route: 048
  15. SOLDEM 1 [Concomitant]
     Active Substance: DEXTROSE\SODIUM CHLORIDE\SODIUM LACTATE
     Dosage: 1000 ML, QD
     Route: 042
     Dates: start: 20160605, end: 20160606
  16. ENTERONON-R [Concomitant]
     Active Substance: PROBIOTICS NOS
     Dosage: 3 G, QD
     Route: 048
     Dates: start: 20160611
  17. TOLVAPTAN [Suspect]
     Active Substance: TOLVAPTAN
     Dosage: 30 MG, IN THE EVENING
     Route: 048
     Dates: start: 20140620, end: 20160604
  18. FEBURIC [Concomitant]
     Active Substance: FEBUXOSTAT
     Indication: HYPERURICAEMIA
     Dosage: 10 MG, QD
     Route: 048
     Dates: start: 20150522
  19. PHYSISALZ [Concomitant]
     Indication: PRODUCT USED FOR UNKNOWN INDICATION
     Dosage: 200 ML, QD
     Route: 042
     Dates: start: 20160605, end: 20160608
  20. SOLULACT [Concomitant]
     Indication: PRODUCT USED FOR UNKNOWN INDICATION
     Dosage: 1000 MG, QD
     Route: 042
     Dates: start: 20160604, end: 20160604
  21. SOLDEM 1 [Concomitant]
     Active Substance: DEXTROSE\SODIUM CHLORIDE\SODIUM LACTATE
     Dosage: 500 ML, QD
     Route: 042
     Dates: start: 20160607, end: 20160608
  22. ENTERONON-R [Concomitant]
     Active Substance: PROBIOTICS NOS
     Dosage: 6 G, QD
     Route: 048
     Dates: start: 20160610, end: 20160610
  23. TOLVAPTAN [Suspect]
     Active Substance: TOLVAPTAN
     Dosage: 30 MG, UNK
     Route: 048
     Dates: start: 20140815
  24. TOLVAPTAN [Suspect]
     Active Substance: TOLVAPTAN
     Dosage: 45 MG, IN THE MORNING
     Route: 048
     Dates: start: 20150213
  25. TOLVAPTAN [Suspect]
     Active Substance: TOLVAPTAN
     Dosage: 30 MG, IN THE EVENING
     Route: 048
     Dates: start: 20150313
  26. ESOMEPRAZOLE MAGNESIUM. [Concomitant]
     Active Substance: ESOMEPRAZOLE MAGNESIUM
     Indication: GASTROOESOPHAGEAL REFLUX DISEASE
     Dosage: 20 MG, QD
     Route: 048
     Dates: start: 20140516
  27. CRAVIT [Concomitant]
     Active Substance: LEVOFLOXACIN
     Dosage: 250 MG, QD
     Route: 048
     Dates: start: 20141122
  28. PHYSISALZ [Concomitant]
     Dosage: 100 ML, QD
     Route: 042
     Dates: start: 20160618, end: 20160619
  29. CALONAL [Concomitant]
     Active Substance: ACETAMINOPHEN
     Indication: PRODUCT USED FOR UNKNOWN INDICATION
     Dosage: 600 MG, QD
     Route: 048
     Dates: start: 20160602, end: 20160604
  30. ASTOMIN [Concomitant]
     Active Substance: DIMEMORFAN
     Dosage: 30 MG, QD
     Route: 048
     Dates: start: 20160611
  31. FEBURIC [Concomitant]
     Active Substance: FEBUXOSTAT
     Indication: HYPERURICAEMIA
     Dosage: 10 MG, QD
     Route: 048
     Dates: start: 20140516
  32. PHYSISALZ [Concomitant]
     Dosage: 300 ML, QD
     Route: 042
     Dates: start: 20160609, end: 20160617
  33. CLARITH [Concomitant]
     Active Substance: CLARITHROMYCIN
     Indication: PRODUCT USED FOR UNKNOWN INDICATION
     Dosage: 400 MG, QD
     Route: 048
     Dates: start: 20160602, end: 20160604
  34. MEROPEN [Concomitant]
     Active Substance: MEROPENEM
     Indication: PRODUCT USED FOR UNKNOWN INDICATION
     Dosage: 1 G, QD
     Route: 042
     Dates: start: 20160604, end: 20160617
  35. ASTOMIN [Concomitant]
     Active Substance: DIMEMORFAN
     Indication: PRODUCT USED FOR UNKNOWN INDICATION
     Dosage: 30 MG, QD
     Route: 048
     Dates: start: 20160606, end: 20160609
  36. TOLVAPTAN [Suspect]
     Active Substance: TOLVAPTAN
     Dosage: 90 MG, IN THE MORNING
     Route: 048
     Dates: start: 20140815
  37. TOLVAPTAN [Suspect]
     Active Substance: TOLVAPTAN
     Dosage: 90 MG, IN THE MORNING
     Route: 048
     Dates: start: 20150313
  38. MEIACT [Concomitant]
     Active Substance: CEFDITOREN PIVOXIL
     Dosage: 100 MG, TID
     Route: 048
     Dates: start: 20141219
  39. CRAVIT [Concomitant]
     Active Substance: LEVOFLOXACIN
     Indication: INFECTED CYST
     Dosage: 500 MG, QD
     Route: 048
     Dates: start: 20141121, end: 20141121
  40. ENTERONON-R [Concomitant]
     Active Substance: PROBIOTICS NOS
     Indication: PRODUCT USED FOR UNKNOWN INDICATION
     Dosage: 3 G, QD
     Route: 048
     Dates: start: 20160605, end: 20160609

REACTIONS (8)
  - Hyperparathyroidism secondary [Not Recovered/Not Resolved]
  - Lower limb fracture [Recovering/Resolving]
  - Renal impairment [Not Recovered/Not Resolved]
  - Fall [Recovered/Resolved]
  - Ventricular extrasystoles [Not Recovered/Not Resolved]
  - Hyperkalaemia [Recovered/Resolved]
  - Thirst [Not Recovered/Not Resolved]
  - Infected cyst [Not Recovered/Not Resolved]

NARRATIVE: CASE EVENT DATE: 2014
